FAERS Safety Report 24048104 (Version 1)
Quarter: 2024Q3

REPORT INFORMATION
  Report Type: Spontaneous
  Country: CN (occurrence: CN)
  Receive Date: 20240703
  Receipt Date: 20240703
  Transmission Date: 20241017
  Serious: Yes (Other)
  Sender: BEIGENE
  Company Number: CN-ABBVIE-5671230

PATIENT

DRUGS (4)
  1. BRUKINSA [Suspect]
     Active Substance: ZANUBRUTINIB
     Indication: Chronic lymphocytic leukaemia
  2. BRUKINSA [Suspect]
     Active Substance: ZANUBRUTINIB
     Indication: Thrombocytopenia
  3. IMBRUVICA [Suspect]
     Active Substance: IBRUTINIB
     Indication: Chronic lymphocytic leukaemia
  4. IMBRUVICA [Suspect]
     Active Substance: IBRUTINIB
     Indication: Thrombocytopenia

REACTIONS (9)
  - Colon cancer [Unknown]
  - Breast cancer [Unknown]
  - Bronchial carcinoma [Unknown]
  - Atrial fibrillation [Unknown]
  - Thrombocytopenia [Unknown]
  - Urinary tract neoplasm [Unknown]
  - Anaemia [Unknown]
  - Infection [Unknown]
  - Neutrophil count decreased [Unknown]
